FAERS Safety Report 25976699 (Version 2)
Quarter: 2025Q4

REPORT INFORMATION
  Report Type: Spontaneous
  Country: JP (occurrence: JP)
  Receive Date: 20251029
  Receipt Date: 20251201
  Transmission Date: 20260117
  Serious: Yes (Death)
  Sender: JOHNSON AND JOHNSON
  Company Number: JP-NShinyaku-EVA20251435301001307081

PATIENT
  Age: 8 Decade
  Sex: Male

DRUGS (3)
  1. UPTRAVI [Suspect]
     Active Substance: SELEXIPAG
     Indication: Pulmonary hypertension
     Dosage: GRADUALLY INCREASED
     Route: 048
  2. UPTRAVI [Suspect]
     Active Substance: SELEXIPAG
     Indication: Pulmonary vein occlusion
     Dosage: UNKNOWN, GRADUALLY INCREASED
     Route: 048
  3. UPTRAVI [Suspect]
     Active Substance: SELEXIPAG
     Indication: Pulmonary capillary haemangiomatosis
     Route: 048

REACTIONS (2)
  - Pulmonary veno-occlusive disease [Fatal]
  - Pulmonary capillary haemangiomatosis [Fatal]
